FAERS Safety Report 24753200 (Version 1)
Quarter: 2024Q4

REPORT INFORMATION
  Report Type: Spontaneous
  Country: US (occurrence: US)
  Receive Date: 20241219
  Receipt Date: 20241219
  Transmission Date: 20250114
  Serious: No
  Sender: PACIRA
  Company Number: US-ORG100016242-2024000029

PATIENT
  Sex: Female

DRUGS (1)
  1. EXPAREL [Suspect]
     Active Substance: BUPIVACAINE
     Indication: Abdominal wall operation
     Dosage: DOSAGE NOT PROVIDED
     Route: 065
     Dates: start: 20240118, end: 20240118

REACTIONS (1)
  - Drug ineffective [Unknown]
